FAERS Safety Report 20157790 (Version 1)
Quarter: 2021Q4

REPORT INFORMATION
  Report Type: Spontaneous
  Country: US (occurrence: US)
  Receive Date: 20211207
  Receipt Date: 20211207
  Transmission Date: 20220303
  Serious: No
  Sender: FDA-Public Use
  Company Number: US-IBSA PHARMA INC.-2021IBS000173

PATIENT

DRUGS (5)
  1. TIROSINT [Suspect]
     Active Substance: LEVOTHYROXINE SODIUM
     Indication: Hypothyroidism
     Dosage: 50 ?G, SINGLE
     Route: 048
     Dates: start: 202108, end: 202108
  2. FISH OIL [Concomitant]
     Active Substance: FISH OIL
     Indication: Product used for unknown indication
     Dosage: UNK, AS DIRECTED
     Route: 048
  3. CALCIUM CITRATE W/MAGNESIUM/VITAMIN D NOS [Concomitant]
     Indication: Product used for unknown indication
     Dosage: UNK, AS DIRECTED
     Route: 048
  4. NASALCROM [Concomitant]
     Active Substance: CROMOLYN SODIUM
     Indication: Product used for unknown indication
     Dosage: UNK, AS NEEDED
  5. SALINE                             /00075401/ [Concomitant]
     Indication: Product used for unknown indication
     Dosage: UNK, AS DIRECTED

REACTIONS (3)
  - Pruritus [Recovered/Resolved]
  - Psychomotor hyperactivity [Recovered/Resolved]
  - Nervousness [Recovered/Resolved]

NARRATIVE: CASE EVENT DATE: 20210801
